FAERS Safety Report 20949032 (Version 1)
Quarter: 2022Q2

REPORT INFORMATION
  Report Type: Report from Study
  Country: US (occurrence: US)
  Receive Date: 20220613
  Receipt Date: 20220613
  Transmission Date: 20220720
  Serious: Yes (Other)
  Sender: FDA-Public Use
  Company Number: US-ABBVIE-22K-163-4427301-00

PATIENT
  Sex: Female

DRUGS (1)
  1. RINVOQ [Suspect]
     Active Substance: UPADACITINIB
     Indication: Product used for unknown indication
     Route: 058

REACTIONS (3)
  - Ventricular extrasystoles [Not Recovered/Not Resolved]
  - Dental fistula [Not Recovered/Not Resolved]
  - Chest pain [Not Recovered/Not Resolved]
